FAERS Safety Report 15859498 (Version 1)
Quarter: 2019Q1

REPORT INFORMATION
  Report Type: Spontaneous
  Country: FR (occurrence: FR)
  Receive Date: 20190123
  Receipt Date: 20190123
  Transmission Date: 20190417
  Serious: Yes (Hospitalization, Other)
  Sender: FDA-Public Use
  Company Number: FR-MYLANLABS-2019M1005712

PATIENT
  Sex: Female

DRUGS (2)
  1. TALMANCO [Suspect]
     Active Substance: TADALAFIL
     Indication: PULMONARY HYPERTENSION
     Dosage: UNK
     Dates: start: 201807
  2. TALMANCO [Suspect]
     Active Substance: TADALAFIL
     Dosage: UNK
     Dates: start: 201810

REACTIONS (3)
  - Pulmonary hypertension [Unknown]
  - Dyspnoea [Unknown]
  - Syncope [Unknown]

NARRATIVE: CASE EVENT DATE: 201811
